FAERS Safety Report 6672021-X (Version None)
Quarter: 2010Q2

REPORT INFORMATION
  Report Type: 
  Country: None (occurrence: None)
  Receive Date: 20100406
  Receipt Date: 20100323
  Transmission Date: 20101027
  Serious: Yes (Disabling)
  Sender: FDA-Public Use
  Company Number: GB-ACCORD-004416

PATIENT
  Age: 68 Year
  Sex: Female
  Weight: 77 kg

DRUGS (7)
  1. SIMVASTATIN [Suspect]
     Indication: BLOOD CHOLESTEROL INCREASED
     Dosage: 80.00-MG- / ORAL
     Route: 048
     Dates: start: 20091208, end: 20100114
  2. CITALOPRAM HYDROBROMIDE [Concomitant]
  3. ESOMEPRAZOLE MAGNESIUM [Concomitant]
  4. LANSOPRAZOLE [Concomitant]
  5. LEVOTHYROXINE SODIUM [Concomitant]
  6. ORLISTAT [Concomitant]
  7. TILDIEM(TILDIEM) [Concomitant]

REACTIONS (3)
  - ALANINE AMINOTRANSFERASE INCREASED [None]
  - MYALGIA [None]
  - PAIN [None]
